FAERS Safety Report 8548756-0 (Version None)
Quarter: 2012Q3

REPORT INFORMATION
  Report Type: 
  Country: None (occurrence: None)
  Receive Date: 20120730
  Receipt Date: 20120724
  Transmission Date: 20120928
  Serious: Yes (Other)
  Sender: FDA-Public Use
  Company Number: PHHY2010FR24667

PATIENT
  Sex: Female
  Weight: 46 kg

DRUGS (3)
  1. ASPIRIN [Concomitant]
     Indication: CEREBROVASCULAR ACCIDENT
     Dosage: 75 MG DAILY
     Dates: start: 20060101
  2. ZOLEDRONOC ACID [Suspect]
     Indication: OSTEOPOROTIC FRACTURE
     Dosage: 5 MG
     Route: 042
     Dates: start: 20100407
  3. CALCIUM/COLECALCIFEROL [Concomitant]
     Indication: OSTEOPOROSIS

REACTIONS (9)
  - DISCOMFORT [None]
  - IRIDOCYCLITIS [None]
  - CONJUNCTIVITIS [None]
  - ATAXIA [None]
  - OPTIC NEURITIS [None]
  - EYE PAIN [None]
  - UVEITIS [None]
  - MULTIPLE SCLEROSIS [None]
  - IRIS ADHESIONS [None]
